FAERS Safety Report 5135311-8 (Version None)
Quarter: 2006Q4

REPORT INFORMATION
  Report Type: 
  Country: None (occurrence: None)
  Receive Date: 20061026
  Receipt Date: 20061016
  Transmission Date: 20070319
  Serious: Yes (Death)
  Sender: FDA-Public Use
  Company Number: EG-AVENTIS-200620831GDDC

PATIENT
  Age: 48 Year
  Sex: Female

DRUGS (3)
  1. TAXOTERE [Suspect]
     Indication: BREAST CANCER
     Route: 042
  2. DOXORUBICIN HCL [Concomitant]
     Indication: BREAST CANCER
     Route: 042
  3. CYCLOPHOSPHAMIDE [Concomitant]
     Indication: BREAST CANCER
     Route: 042

REACTIONS (5)
  - ABDOMINAL PAIN [None]
  - DIARRHOEA [None]
  - DRUG TOXICITY [None]
  - FEBRILE NEUTROPENIA [None]
  - MUCOSAL INFLAMMATION [None]
